FAERS Safety Report 23133129 (Version 1)
Quarter: 2023Q4

REPORT INFORMATION
  Report Type: Spontaneous
  Country: CA (occurrence: CA)
  Receive Date: 20231101
  Receipt Date: 20231101
  Transmission Date: 20240110
  Serious: Yes (Other)
  Sender: FDA-Public Use
  Company Number: CA-GLAXOSMITHKLINE-CA2023GSK149178

PATIENT

DRUGS (6)
  1. BUPROPION [Suspect]
     Active Substance: BUPROPION
     Indication: Product used for unknown indication
     Dosage: 1 UNK, BID, 150 MG
  2. MONTELUKAST [Suspect]
     Active Substance: MONTELUKAST SODIUM
     Indication: Product used for unknown indication
     Dosage: UNK
  3. BUDESONIDE [Concomitant]
     Active Substance: BUDESONIDE
     Indication: Product used for unknown indication
     Dosage: UNK
  4. FORMOTEROL FUMARATE [Concomitant]
     Active Substance: FORMOTEROL FUMARATE
     Indication: Product used for unknown indication
     Dosage: 1 UNK, BID,8 DOSAGE FORMS(4 DOSAGE FORMS
  5. DYMISTA [Concomitant]
     Active Substance: AZELASTINE HYDROCHLORIDE\FLUTICASONE PROPIONATE
     Indication: Product used for unknown indication
     Dosage: UNK
  6. VENTOLIN [Concomitant]
     Active Substance: ALBUTEROL SULFATE
     Indication: Product used for unknown indication
     Dosage: UNK

REACTIONS (12)
  - Cardiac infection [Unknown]
  - Electrocardiogram ST-T segment abnormal [Unknown]
  - Chest discomfort [Unknown]
  - Hypopnoea [Unknown]
  - Obstructive airways disorder [Unknown]
  - Sinus arrhythmia [Unknown]
  - Dyspnoea [Unknown]
  - Dyspnoea exertional [Unknown]
  - Middle insomnia [Unknown]
  - Headache [Unknown]
  - Drug intolerance [Unknown]
  - Drug ineffective [Unknown]
